FAERS Safety Report 9467343 (Version 1)
Quarter: 2013Q3

REPORT INFORMATION
  Report Type: Spontaneous
  Country: CH (occurrence: CH)
  Receive Date: 20130821
  Receipt Date: 20130821
  Transmission Date: 20140515
  Serious: Yes (Other)
  Sender: FDA-Public Use
  Company Number: CH-AMGEN-CHESP2013057248

PATIENT
  Age: 36 Year
  Sex: Female

DRUGS (5)
  1. ARANESP [Suspect]
     Indication: RENAL FAILURE CHRONIC
     Dosage: 30 MUG, QWK
     Route: 065
  2. LOPRIL [Suspect]
     Indication: SECONDARY HYPERTENSION
     Dosage: 10 MG, QD
     Route: 065
  3. METO ZEROK [Suspect]
     Indication: SECONDARY HYPERTENSION
     Route: 065
  4. CALCITRIOL [Suspect]
     Indication: PRODUCT USED FOR UNKNOWN INDICATION
     Route: 065
  5. CORTICOSTEROIDS [Concomitant]

REACTIONS (5)
  - Pre-eclampsia [Unknown]
  - Anaemia [Unknown]
  - Premature delivery [Unknown]
  - Placental insufficiency [Unknown]
  - Haemorrhage in pregnancy [Unknown]
